FAERS Safety Report 18678513 (Version 1)
Quarter: 2020Q4

REPORT INFORMATION
  Report Type: Spontaneous
  Country: AU (occurrence: AU)
  Receive Date: 20201230
  Receipt Date: 20201230
  Transmission Date: 20210114
  Serious: Yes (Life-Threatening, Hospitalization, Other)
  Sender: FDA-Public Use
  Company Number: AU-LUPIN PHARMACEUTICALS INC.-2020-11035

PATIENT
  Age: 39 Year
  Sex: Female

DRUGS (2)
  1. MISOPROSTOL. [Suspect]
     Active Substance: MISOPROSTOL
     Indication: ABORTION INDUCED
     Dosage: UNK
     Route: 065
  2. AMFETAMINE [Interacting]
     Active Substance: AMPHETAMINE
     Indication: DEPRESSION
     Dosage: UNK
     Route: 065

REACTIONS (5)
  - Cardiac arrest [Recovering/Resolving]
  - Arteriospasm coronary [Recovering/Resolving]
  - Drug interaction [Unknown]
  - Maternal exposure during pregnancy [Unknown]
  - Acute myocardial infarction [Recovering/Resolving]
